FAERS Safety Report 7413448-8 (Version None)
Quarter: 2011Q2

REPORT INFORMATION
  Report Type: 
  Country: None (occurrence: None)
  Receive Date: 20110413
  Receipt Date: 20110406
  Transmission Date: 20111010
  Serious: Yes (Hospitalization, Other)
  Sender: FDA-Public Use
  Company Number: PHHO2011US06208

PATIENT
  Age: 85 Year
  Sex: Female
  Weight: 65.306 kg

DRUGS (10)
  1. DIGOXIN [Concomitant]
  2. AMARYL [Concomitant]
  3. AFINITOR [Suspect]
     Indication: BREAST CANCER METASTATIC
     Dosage: 10 MG, QD
     Route: 048
     Dates: start: 20110223, end: 20110316
  4. METOPROLOL TARTRATE [Concomitant]
  5. DOXAZOSIN [Concomitant]
  6. HYDROCHLOROTHIAZIDE [Concomitant]
  7. ASPIRIN [Concomitant]
  8. CITALOPRAM HYDROBROMIDE [Concomitant]
  9. FULVESTRANT [Concomitant]
     Indication: BREAST CANCER METASTATIC
     Dosage: 250 MG, UNK
  10. BENICAR [Concomitant]

REACTIONS (2)
  - ATRIAL FIBRILLATION [None]
  - PNEUMONIA [None]
